FAERS Safety Report 6537587-9 (Version None)
Quarter: 2010Q1

REPORT INFORMATION
  Report Type: 
  Country: None (occurrence: None)
  Receive Date: 20100114
  Receipt Date: 20100104
  Transmission Date: 20100710
  Serious: Yes (Hospitalization, Other)
  Sender: FDA-Public Use
  Company Number: US-ABBOTT-09P-163-0607685-00

PATIENT
  Sex: Female

DRUGS (9)
  1. DEPAKOTE [Suspect]
     Indication: DRUG USE FOR UNKNOWN INDICATION
  2. AVONEX [Suspect]
     Indication: RELAPSING-REMITTING MULTIPLE SCLEROSIS
     Dosage: 8 MIU EVERY OTHER DAY
     Route: 058
     Dates: start: 19940104
  3. CARBAMAZEPINE [Suspect]
     Indication: DRUG USE FOR UNKNOWN INDICATION
     Dates: end: 20090601
  4. LYRICA [Suspect]
     Indication: DRUG USE FOR UNKNOWN INDICATION
  5. SULFA [Suspect]
     Indication: DRUG USE FOR UNKNOWN INDICATION
  6. PENICILLIN VK [Suspect]
     Indication: DRUG USE FOR UNKNOWN INDICATION
  7. TEGRETOL [Suspect]
     Indication: DRUG USE FOR UNKNOWN INDICATION
  8. TRILEPTAL [Suspect]
     Indication: DRUG USE FOR UNKNOWN INDICATION
  9. EFFEXOR [Concomitant]
     Indication: DEPRESSION

REACTIONS (13)
  - ABDOMINAL ADHESIONS [None]
  - DEPRESSION [None]
  - FALL [None]
  - GENERALISED OEDEMA [None]
  - INTESTINAL STRANGULATION [None]
  - LOWER LIMB FRACTURE [None]
  - MOBILITY DECREASED [None]
  - PAIN OF SKIN [None]
  - RASH [None]
  - RENAL DISORDER [None]
  - SKIN EXFOLIATION [None]
  - SKIN FISSURES [None]
  - SKIN HAEMORRHAGE [None]
